FAERS Safety Report 5201828-0 (Version None)
Quarter: 2006Q4

REPORT INFORMATION
  Report Type: 
  Country: None (occurrence: None)
  Receive Date: 20061003
  Receipt Date: 20060522
  Transmission Date: 20070319
  Serious: Yes (Other)
  Sender: FDA-Public Use
  Company Number: 8017125

PATIENT
  Age: 34 Year
  Sex: Male

DRUGS (2)
  1. DIPENTUM [Suspect]
     Indication: COLITIS ULCERATIVE
     Dosage: 500 MG 2/D PO
     Route: 048
     Dates: start: 20000101, end: 20040101
  2. DIPENTUM [Suspect]
     Indication: COLITIS ULCERATIVE
     Dosage: 250 MG 2/D  PO
     Route: 048
     Dates: start: 20040101

REACTIONS (1)
  - HEPATIC ENZYME INCREASED [None]
